FAERS Safety Report 19982800 (Version 1)
Quarter: 2021Q4

REPORT INFORMATION
  Report Type: Spontaneous
  Country: US (occurrence: US)
  Receive Date: 20211021
  Receipt Date: 20211021
  Transmission Date: 20220303
  Serious: Yes (Hospitalization)
  Sender: FDA-Public Use
  Company Number: None

PATIENT
  Age: 53 Year
  Sex: Female
  Weight: 87.3 kg

DRUGS (1)
  1. REGEN-COV [Suspect]
     Active Substance: CASIRIVIMAB\IMDEVIMAB
     Indication: COVID-19
     Dosage: ?          OTHER FREQUENCY:2 TIMES;
     Route: 058
     Dates: start: 20211021, end: 20211021

REACTIONS (6)
  - Dizziness [None]
  - Tremor [None]
  - Loss of consciousness [None]
  - Blood pressure immeasurable [None]
  - Oxygen saturation decreased [None]
  - Heart rate decreased [None]

NARRATIVE: CASE EVENT DATE: 20211021
